FAERS Safety Report 18702067 (Version 3)
Quarter: 2022Q3

REPORT INFORMATION
  Report Type: Report from Study
  Country: CA (occurrence: CA)
  Receive Date: 20210105
  Receipt Date: 20220729
  Transmission Date: 20221027
  Serious: Yes (Other)
  Sender: FDA-Public Use
  Company Number: CA-JNJFOC-20201241487

PATIENT
  Sex: Female
  Weight: 60 kg

DRUGS (12)
  1. SELEXIPAG [Suspect]
     Active Substance: SELEXIPAG
     Indication: Pulmonary arterial hypertension
     Route: 048
     Dates: start: 20201016, end: 20201021
  2. ADCIRCA [Suspect]
     Active Substance: TADALAFIL
     Indication: Pulmonary arterial hypertension
     Route: 048
     Dates: start: 20191010, end: 20200110
  3. AMBRISENTAN [Concomitant]
     Active Substance: AMBRISENTAN
     Indication: Pulmonary arterial hypertension
     Route: 048
     Dates: start: 20110513
  4. TYLENOL [Concomitant]
     Active Substance: ACETAMINOPHEN
     Indication: Myalgia
     Route: 048
     Dates: start: 198506
  5. ATROVENT [Concomitant]
     Active Substance: IPRATROPIUM BROMIDE
     Indication: Nasal congestion
     Route: 055
     Dates: start: 20190507
  6. OXYGEN [Concomitant]
     Active Substance: OXYGEN
     Indication: Pulmonary arterial hypertension
     Route: 055
     Dates: start: 20181128
  7. ZOLOFT [Concomitant]
     Active Substance: SERTRALINE HYDROCHLORIDE
     Indication: Depression
     Route: 048
     Dates: start: 2014
  8. ZOPICLONE [Concomitant]
     Active Substance: ZOPICLONE
     Indication: Insomnia
     Route: 048
     Dates: start: 2014
  9. PLAVIX [Concomitant]
     Active Substance: CLOPIDOGREL BISULFATE
     Indication: Transient ischaemic attack
     Route: 048
     Dates: start: 20150930
  10. HYDROXYCHLOROQUINE DIPHOSPHATE [Concomitant]
     Active Substance: HYDROXYCHLOROQUINE DIPHOSPHATE
     Indication: Systemic lupus erythematosus
     Route: 048
     Dates: start: 20050323
  11. VITAMIN D3 [Concomitant]
     Active Substance: CHOLECALCIFEROL
     Indication: Osteoporosis prophylaxis
     Route: 048
     Dates: start: 2018
  12. DILTIAZEM [Concomitant]
     Active Substance: DILTIAZEM
     Indication: Raynaud^s phenomenon
     Route: 048
     Dates: start: 199106

REACTIONS (6)
  - Cataract [Unknown]
  - Polyp [Unknown]
  - Dyspepsia [Unknown]
  - Nausea [Unknown]
  - Malaise [Unknown]
  - Upper respiratory tract infection [Unknown]

NARRATIVE: CASE EVENT DATE: 20201016
